FAERS Safety Report 4618253-3 (Version None)
Quarter: 2005Q1

REPORT INFORMATION
  Report Type: 
  Country: None (occurrence: None)
  Receive Date: 20050324
  Receipt Date: 20050311
  Transmission Date: 20050727
  Serious: Yes (Hospitalization)
  Sender: FDA-Public Use
  Company Number: 2005044729

PATIENT
  Age: 42 Year
  Sex: Female

DRUGS (5)
  1. ZITHROMAX [Suspect]
     Indication: BRONCHITIS
     Dosage: 500 MG, ORAL
     Route: 048
     Dates: start: 20050304, end: 20050305
  2. PL GRAN. (CAFFEINE, PARACETAMOL, PROMETHAZINE METHYLENE DISALICYLATE, [Concomitant]
  3. SERRAPEPTASE (SERRAPEPTASE) [Concomitant]
  4. MARZULENE S (LEVOGLUTAMIDE, SODIUM GUALENATE) [Concomitant]
  5. ALL OTHER THERAPEUTIC PRODUCTS (ALL OTHER THERAPEUTIC PRODUCTS) [Concomitant]

REACTIONS (3)
  - ASTHENIA [None]
  - PARALYSIS [None]
  - TREMOR [None]
